FAERS Safety Report 10524589 (Version 1)
Quarter: 2014Q4

REPORT INFORMATION
  Report Type: Spontaneous
  Country: US (occurrence: US)
  Receive Date: 20141017
  Receipt Date: 20141017
  Transmission Date: 20150528
  Serious: No
  Sender: FDA-Public Use
  Company Number: US-ASTRAZENECA-2014SE78179

PATIENT
  Age: 70 Year
  Sex: Male
  Weight: 84 kg

DRUGS (4)
  1. NEXIUM 24HR [Suspect]
     Active Substance: ESOMEPRAZOLE MAGNESIUM
     Indication: ERUCTATION
     Route: 048
  2. NEXIUM 24HR [Suspect]
     Active Substance: ESOMEPRAZOLE MAGNESIUM
     Indication: ERUCTATION
     Route: 048
     Dates: start: 2014
  3. BIOTENE [Concomitant]
     Active Substance: SODIUM MONOFLUOROPHOSPHATE
  4. DIURETICS [Concomitant]
     Active Substance: UNSPECIFIED INGREDIENT

REACTIONS (5)
  - Oral pain [Unknown]
  - Intentional product misuse [Unknown]
  - Oral disorder [Unknown]
  - Dry mouth [Unknown]
  - Respiratory rate decreased [Unknown]

NARRATIVE: CASE EVENT DATE: 20140620
